FAERS Safety Report 9311571 (Version 1)
Quarter: 2013Q2

REPORT INFORMATION
  Report Type: Spontaneous
  Country: AT (occurrence: AT)
  Receive Date: 20130528
  Receipt Date: 20130528
  Transmission Date: 20140414
  Serious: Yes (Hospitalization)
  Sender: FDA-Public Use
  Company Number: AT-BAXTER-2013BAX018486

PATIENT
  Age: 64 Year
  Sex: Female
  Weight: 65 kg

DRUGS (4)
  1. ENDOXAN ^BAXTER^ 100 MG - TROCKENSTECHAMPULLE [Suspect]
     Indication: CHEMOTHERAPY
     Route: 042
     Dates: start: 20130219, end: 20130219
  2. NEULASTA [Suspect]
     Indication: PRODUCT USED FOR UNKNOWN INDICATION
     Route: 058
     Dates: start: 20130220
  3. 5 FLUOROURACIL [Suspect]
     Indication: CHEMOTHERAPY
     Route: 042
     Dates: start: 20130219, end: 20130219
  4. EPIRUBICIN [Suspect]
     Indication: CHEMOTHERAPY
     Route: 042
     Dates: start: 20130219, end: 20130219

REACTIONS (3)
  - Neutropenia [Recovered/Resolved]
  - Furuncle [Unknown]
  - Gastroenteritis [Unknown]
